FAERS Safety Report 12474143 (Version 2)
Quarter: 2016Q3

REPORT INFORMATION
  Report Type: Spontaneous
  Country: NL (occurrence: NL)
  Receive Date: 20160616
  Receipt Date: 20160727
  Transmission Date: 20161109
  Serious: Yes (Life-Threatening, Hospitalization, Disabling)
  Sender: FDA-Public Use
  Company Number: NL-ASTRAZENECA-2016SE61909

PATIENT
  Age: 18917 Day
  Sex: Female
  Weight: 90 kg

DRUGS (2)
  1. NEXIUM [Suspect]
     Active Substance: ESOMEPRAZOLE MAGNESIUM
     Indication: DIAPHRAGMATIC HERNIA
     Route: 048
     Dates: start: 2001
  2. LOSEC [Suspect]
     Active Substance: OMEPRAZOLE
     Indication: GASTRIC ULCER
     Route: 048
     Dates: start: 1996, end: 1996

REACTIONS (1)
  - Rectal cancer [Recovered/Resolved with Sequelae]

NARRATIVE: CASE EVENT DATE: 20090520
